FAERS Safety Report 5104088-4 (Version None)
Quarter: 2006Q3

REPORT INFORMATION
  Report Type: 
  Country: None (occurrence: None)
  Receive Date: 20060913
  Receipt Date: 20060911
  Transmission Date: 20061208
  Serious: Yes (Hospitalization)
  Sender: FDA-Public Use
  Company Number: TR-BOEHRINGER INGELHEIM PHARMACEUTICALS, INC.-2006-DE-04883GD

PATIENT
  Age: 46 Year
  Sex: Male

DRUGS (2)
  1. SPIRIVA [Suspect]
     Indication: CHRONIC OBSTRUCTIVE PULMONARY DISEASE
     Route: 055
  2. SPIRIVA [Suspect]
     Route: 047

REACTIONS (8)
  - ACCIDENTAL EXPOSURE [None]
  - ANGLE CLOSURE GLAUCOMA [None]
  - CATARACT SUBCAPSULAR [None]
  - CONJUNCTIVAL HYPERAEMIA [None]
  - CORNEAL OEDEMA [None]
  - PAIN [None]
  - PUPIL FIXED [None]
  - VISUAL ACUITY REDUCED [None]
